FAERS Safety Report 25182234 (Version 1)
Quarter: 2025Q2

REPORT INFORMATION
  Report Type: Spontaneous
  Country: US (occurrence: US)
  Receive Date: 20250410
  Receipt Date: 20250410
  Transmission Date: 20250717
  Serious: No
  Sender: KINIKSA PHARMACEUTICALS
  Company Number: US-Kiniksa Pharmaceuticals Ltd.-2024KPU000527

PATIENT
  Sex: Male

DRUGS (1)
  1. ARCALYST [Suspect]
     Active Substance: RILONACEPT
     Indication: Still^s disease
     Route: 058
     Dates: start: 202401

REACTIONS (3)
  - Photophobia [Unknown]
  - Vitreous floaters [Unknown]
  - Swelling of eyelid [Unknown]
